FAERS Safety Report 4437652-6 (Version None)
Quarter: 2004Q3

REPORT INFORMATION
  Report Type: 
  Country: None (occurrence: None)
  Receive Date: 20040728
  Receipt Date: 20040318
  Transmission Date: 20050211
  Serious: No
  Sender: FDA-Public Use
  Company Number: USA040362549

PATIENT
  Age: 19 Year
  Sex: Female
  Weight: 48 kg

DRUGS (3)
  1. STRATTERA [Suspect]
     Indication: ATTENTION DEFICIT/HYPERACTIVITY DISORDER
     Dosage: 18 MG
     Dates: start: 20040314
  2. FLUOXETINE HCL [Concomitant]
  3. MINOCYCLINE HCL [Concomitant]

REACTIONS (3)
  - NASAL DRYNESS [None]
  - NASOPHARYNGITIS [None]
  - SINUSITIS [None]
